FAERS Safety Report 9410676 (Version 1)
Quarter: 2013Q3

REPORT INFORMATION
  Report Type: Other
  Country: BB (occurrence: BB)
  Receive Date: 20130719
  Receipt Date: 20130719
  Transmission Date: 20140515
  Serious: Yes (Other)
  Sender: FDA-Public Use
  Company Number: BB-BRISTOL-MYERS SQUIBB COMPANY-19119783

PATIENT
  Age: 62 Year
  Sex: Male

DRUGS (4)
  1. METFORMIN HCL [Suspect]
     Indication: TYPE 2 DIABETES MELLITUS
     Route: 048
  2. GLICLAZIDE [Suspect]
     Indication: TYPE 2 DIABETES MELLITUS
     Route: 048
  3. DILTIAZEM HCL [Concomitant]
     Route: 048
  4. SIMVASTATIN [Concomitant]
     Route: 048

REACTIONS (2)
  - Myocardial ischaemia [Unknown]
  - Acute myocardial infarction [Unknown]
